FAERS Safety Report 16026582 (Version 1)
Quarter: 2019Q1

REPORT INFORMATION
  Report Type: Spontaneous
  Country: US (occurrence: US)
  Receive Date: 20190302
  Receipt Date: 20190302
  Transmission Date: 20190418
  Serious: Yes (Other)
  Sender: FDA-Public Use
  Company Number: US-PRINSTON PHARMACEUTICAL INC.-2019PRN00256

PATIENT
  Sex: Female

DRUGS (1)
  1. IRBESARTAN. [Suspect]
     Active Substance: IRBESARTAN
     Indication: CARDIAC DISORDER
     Dosage: 300 MG, 1X/DAY IN THE MORNING

REACTIONS (3)
  - Dyspnoea [Unknown]
  - Blood pressure abnormal [Unknown]
  - Recalled product administered [Unknown]
